APPROVED DRUG PRODUCT: CLARITIN HIVES RELIEF
Active Ingredient: LORATADINE
Strength: 1MG/ML **Federal Register determination that product was not discontinued or withdrawn for safety or effectiveness reasons**
Dosage Form/Route: SYRUP;ORAL
Application: N020641 | Product #003
Applicant: BAYER HEALTHCARE LLC
Approved: Nov 19, 2003 | RLD: Yes | RS: No | Type: DISCN